FAERS Safety Report 24061142 (Version 1)
Quarter: 2024Q3

REPORT INFORMATION
  Report Type: Spontaneous
  Country: US (occurrence: None)
  Receive Date: 20240705
  Receipt Date: 20240705
  Transmission Date: 20241016
  Serious: No
  Sender: Public
  Company Number: None

PATIENT
  Age: 62 Year
  Sex: Female
  Weight: 66.15 kg

DRUGS (6)
  1. HYDROQUINONE [Suspect]
     Active Substance: HYDROQUINONE
     Indication: Skin disorder
     Dosage: OTHER STRENGTH : DIME-SIZE CREAM?OTHER QUANTITY : 1 CREAM?
     Route: 061
     Dates: start: 20240620, end: 20240704
  2. METFORMIN [Concomitant]
     Active Substance: METFORMIN HYDROCHLORIDE
  3. ROSUVASTATIN [Concomitant]
     Active Substance: ROSUVASTATIN
  4. JARDIANCE [Concomitant]
     Active Substance: EMPAGLIFLOZIN
  5. centrum silver for 50+ [Concomitant]
  6. calcium with vitamin d [Concomitant]

REACTIONS (3)
  - Pruritus [None]
  - Application site pain [None]
  - Swelling [None]

NARRATIVE: CASE EVENT DATE: 20240703
